FAERS Safety Report 19397965 (Version 1)
Quarter: 2021Q2

REPORT INFORMATION
  Report Type: Spontaneous
  Country: US (occurrence: US)
  Receive Date: 20210609
  Receipt Date: 20210609
  Transmission Date: 20210717
  Serious: No
  Sender: FDA-Public Use
  Company Number: None

PATIENT
  Sex: Female
  Weight: 45.99 kg

DRUGS (6)
  1. MORPHINE SULFATE ER [Concomitant]
     Active Substance: MORPHINE SULFATE
  2. ONDANSETRON [Concomitant]
     Active Substance: ONDANSETRON
  3. BRAFTOVI [Suspect]
     Active Substance: ENCORAFENIB
     Indication: RECTAL CANCER
     Route: 048
     Dates: start: 20201203, end: 20210608
  4. LEVOTHYROXINE. [Concomitant]
     Active Substance: LEVOTHYROXINE
  5. OXYCODONE [Concomitant]
     Active Substance: OXYCODONE
  6. PROCHLORPERAZINE. [Concomitant]
     Active Substance: PROCHLORPERAZINE

REACTIONS (2)
  - Disease progression [None]
  - Therapy cessation [None]
